FAERS Safety Report 11463683 (Version 1)
Quarter: 2015Q3

REPORT INFORMATION
  Report Type: Spontaneous
  Country: US (occurrence: US)
  Receive Date: 20150831
  Receipt Date: 20150831
  Transmission Date: 20151125
  Serious: Yes (Other)
  Sender: FDA-Public Use
  Company Number: US-ELI_LILLY_AND_COMPANY-US201103003688

PATIENT
  Sex: Female
  Weight: 92.4 kg

DRUGS (10)
  1. ANTIHYPERTENSIVES [Concomitant]
     Active Substance: UNSPECIFIED INGREDIENT
  2. ASA [Concomitant]
     Active Substance: ASPIRIN
  3. CYMBALTA [Suspect]
     Active Substance: DULOXETINE HYDROCHLORIDE
     Indication: BACK PAIN
     Dosage: 30 MG, QD
     Route: 048
     Dates: start: 20110204, end: 20110224
  4. LORAZEPAM. [Concomitant]
     Active Substance: LORAZEPAM
  5. COREG [Concomitant]
     Active Substance: CARVEDILOL
     Dosage: UNK, UNKNOWN
  6. LIPITOR [Concomitant]
     Active Substance: ATORVASTATIN CALCIUM
  7. COREG [Concomitant]
     Active Substance: CARVEDILOL
     Dosage: UNK, UNKNOWN
  8. TRAMADOL. [Concomitant]
     Active Substance: TRAMADOL
  9. ALLOPURINOL. [Concomitant]
     Active Substance: ALLOPURINOL
  10. ALTACE [Concomitant]
     Active Substance: RAMIPRIL

REACTIONS (1)
  - Blood pressure increased [Recovering/Resolving]
